FAERS Safety Report 4763759-X (Version None)
Quarter: 2005Q3

REPORT INFORMATION
  Report Type: 
  Country: None (occurrence: None)
  Receive Date: 20050908
  Receipt Date: 20050415
  Transmission Date: 20060218
  Serious: Yes (Hospitalization, Other)
  Sender: FDA-Public Use
  Company Number: DE-NOVOPROD-243603

PATIENT
  Age: 10 Year
  Sex: Male
  Weight: 57 kg

DRUGS (4)
  1. NORDITROPIN [Suspect]
     Indication: GROWTH HORMONE DEFICIENCY
     Dosage: 1.3 MG, QD
     Route: 058
     Dates: start: 20041004
  2. MINRIN [Concomitant]
     Dosage: .075 UNK, QD
     Route: 045
     Dates: start: 20030401
  3. L-THYROXIN ^HENNING BERLIN^ [Concomitant]
     Dosage: 75 UG, QD
     Route: 048
     Dates: start: 20030401
  4. HYDROCORTISON [Concomitant]
     Dosage: 12.5 MG, QD
     Route: 048
     Dates: start: 20030401

REACTIONS (2)
  - CRANIOPHARYNGIOMA [None]
  - DISEASE RECURRENCE [None]
